FAERS Safety Report 22355377 (Version 1)
Quarter: 2023Q2

REPORT INFORMATION
  Report Type: Spontaneous
  Country: US (occurrence: US)
  Receive Date: 20230523
  Receipt Date: 20230523
  Transmission Date: 20230722
  Serious: No
  Sender: FDA-Public Use
  Company Number: US-PFIZER INC-202300194554

PATIENT
  Sex: Female

DRUGS (1)
  1. ZYVOX [Suspect]
     Active Substance: LINEZOLID
     Dosage: UNK

REACTIONS (6)
  - Asthenia [Unknown]
  - Limb discomfort [Unknown]
  - Dyspnoea exertional [Unknown]
  - Blood magnesium decreased [Unknown]
  - Photopsia [Unknown]
  - Tongue disorder [Unknown]
